FAERS Safety Report 6186458-9 (Version None)
Quarter: 2009Q2

REPORT INFORMATION
  Report Type: 
  Country: None (occurrence: None)
  Receive Date: 20090511
  Receipt Date: 20090506
  Transmission Date: 20091009
  Serious: Yes (Death)
  Sender: FDA-Public Use
  Company Number: US-GILEAD-2009-0021766

PATIENT
  Sex: Female

DRUGS (12)
  1. LETAIRIS [Suspect]
     Indication: PULMONARY ARTERIAL HYPERTENSION
     Dates: start: 20070815
  2. SILDENAFIL CITRATE [Concomitant]
  3. COUMADIN [Concomitant]
  4. LASIX [Concomitant]
  5. ADVAIR HFA [Concomitant]
  6. SPIRIVA [Concomitant]
  7. DETROL LA [Concomitant]
  8. TRAMADOL HCL [Concomitant]
  9. NEURONTIN [Concomitant]
  10. ALLOPURINOL [Concomitant]
  11. REGLAN [Concomitant]
  12. NEXIUM [Concomitant]

REACTIONS (1)
  - CARDIAC DISORDER [None]
